FAERS Safety Report 21077336 (Version 1)
Quarter: 2022Q3

REPORT INFORMATION
  Report Type: Spontaneous
  Country: US (occurrence: US)
  Receive Date: 20220713
  Receipt Date: 20220713
  Transmission Date: 20221027
  Serious: Yes (Hospitalization, Other)
  Sender: FDA-Public Use
  Company Number: US-MYLANLABS-2022M1051889

PATIENT
  Sex: Female
  Weight: 89.36 kg

DRUGS (4)
  1. SEMGLEE (INSULIN GLARGINE-YFGN) [Suspect]
     Active Substance: INSULIN GLARGINE-YFGN
     Indication: Type 2 diabetes mellitus
     Dosage: 100 UNITS/ML (90 UNITS/DAY)
     Route: 058
  2. VANCOMYCIN [Concomitant]
     Active Substance: VANCOMYCIN
     Indication: Infusion
     Dosage: UNK
     Route: 065
  3. CETAPIN [Concomitant]
     Dosage: UNK
     Route: 065
  4. DAPTOMYCIN [Concomitant]
     Active Substance: DAPTOMYCIN
     Dosage: UNK
     Route: 065

REACTIONS (6)
  - Thermal burn [Unknown]
  - Osteomyelitis [Unknown]
  - Weight decreased [Unknown]
  - Stress [Unknown]
  - Illness [Unknown]
  - Device defective [Unknown]
